FAERS Safety Report 24885456 (Version 3)
Quarter: 2025Q2

REPORT INFORMATION
  Report Type: Spontaneous
  Country: CA (occurrence: CA)
  Receive Date: 20250124
  Receipt Date: 20250528
  Transmission Date: 20250717
  Serious: Yes (Other)
  Sender: BIOMARIN
  Company Number: CA-SA-2025SA017769

PATIENT

DRUGS (3)
  1. LARONIDASE [Suspect]
     Active Substance: LARONIDASE
     Indication: Mucopolysaccharidosis I
     Dosage: 37.7 MG, QW
     Route: 042
     Dates: start: 20101209
  2. LARONIDASE [Suspect]
     Active Substance: LARONIDASE
     Dosage: 37.7 MG, QW
     Route: 042
  3. BISOPROLOL [Concomitant]
     Active Substance: BISOPROLOL
     Indication: Heart rate decreased
     Dates: start: 2023

REACTIONS (6)
  - Pyelonephritis [Unknown]
  - Glaucoma [Unknown]
  - Pain [Unknown]
  - Pain in extremity [Unknown]
  - Migraine [Unknown]
  - Hypotension [Unknown]

NARRATIVE: CASE EVENT DATE: 20230101
